FAERS Safety Report 24868319 (Version 1)
Quarter: 2025Q1

REPORT INFORMATION
  Report Type: Spontaneous
  Country: GB (occurrence: GB)
  Receive Date: 20250121
  Receipt Date: 20250121
  Transmission Date: 20250408
  Serious: Yes (Hospitalization)
  Sender: MYLAN
  Company Number: GB-MYLANLABS-2025M1004595

PATIENT
  Age: 35 Year
  Sex: Male

DRUGS (5)
  1. FLUCONAZOLE [Suspect]
     Active Substance: FLUCONAZOLE
     Indication: Fungal infection
     Route: 048
  2. VORICONAZOLE [Suspect]
     Active Substance: VORICONAZOLE
     Indication: Aspergillus infection
     Dosage: 400 MILLIGRAM, BID (FOR ONE DAY)
     Route: 065
  3. VORICONAZOLE [Suspect]
     Active Substance: VORICONAZOLE
     Dosage: 200 MILLIGRAM, BID
     Route: 065
  4. POTASSIUM CITRATE [Concomitant]
     Active Substance: POTASSIUM CITRATE
     Indication: Nephrolithiasis
     Route: 065
  5. ALLOPURINOL [Concomitant]
     Active Substance: ALLOPURINOL
     Indication: Nephrolithiasis
     Route: 065

REACTIONS (2)
  - Drug ineffective [Unknown]
  - Hepatotoxicity [Recovered/Resolved]
